FAERS Safety Report 10175940 (Version 1)
Quarter: 2014Q2

REPORT INFORMATION
  Report Type: Spontaneous
  Country: US (occurrence: US)
  Receive Date: 20140516
  Receipt Date: 20140516
  Transmission Date: 20141212
  Serious: Yes (Life-Threatening, Hospitalization, Disabling, Other)
  Sender: FDA-Public Use
  Company Number: US-009507513-1405USA005867

PATIENT
  Age: 48 Year
  Sex: Female
  Weight: 81.63 kg

DRUGS (2)
  1. ISENTRESS [Suspect]
     Indication: HIV INFECTION
     Dosage: 400 MG, BID
     Route: 048
  2. ISENTRESS [Suspect]
     Dosage: UNK

REACTIONS (6)
  - Abasia [Unknown]
  - Osteonecrosis [Unknown]
  - Knee arthroplasty [Unknown]
  - Laparoscopic surgery [Unknown]
  - Weight increased [Unknown]
  - Arthralgia [Unknown]
